FAERS Safety Report 19222101 (Version 1)
Quarter: 2021Q2

REPORT INFORMATION
  Report Type: Spontaneous
  Country: US (occurrence: US)
  Receive Date: 20210505
  Receipt Date: 20210505
  Transmission Date: 20210717
  Serious: Yes (Hospitalization)
  Sender: FDA-Public Use
  Company Number: None

PATIENT
  Age: 45 Year
  Sex: Male

DRUGS (1)
  1. ENBREL [Suspect]
     Active Substance: ETANERCEPT
     Indication: RHEUMATIC DISORDER
     Dosage: 1 SYR QWK SQ
     Route: 058
     Dates: start: 20200717

REACTIONS (3)
  - Toe amputation [None]
  - Product dose omission issue [None]
  - Fall [None]

NARRATIVE: CASE EVENT DATE: 20210504
